FAERS Safety Report 6629677-7 (Version None)
Quarter: 2010Q1

REPORT INFORMATION
  Report Type: 
  Country: None (occurrence: None)
  Receive Date: 20100311
  Receipt Date: 20090727
  Transmission Date: 20100710
  Serious: No
  Sender: FDA-Public Use
  Company Number: US-BIOGENIDEC-2009BI019910

PATIENT
  Sex: Female

DRUGS (1)
  1. AVONEX [Suspect]
     Indication: MULTIPLE SCLEROSIS
     Route: 030
     Dates: start: 20071123, end: 20090529

REACTIONS (12)
  - ABASIA [None]
  - ABDOMINAL PAIN UPPER [None]
  - BALANCE DISORDER [None]
  - BONE PAIN [None]
  - DEPRESSION [None]
  - HYPERTENSION [None]
  - HYPOPHAGIA [None]
  - INJECTION SITE HAEMORRHAGE [None]
  - LIVER FUNCTION TEST ABNORMAL [None]
  - PAIN [None]
  - STRESS [None]
  - WRONG TECHNIQUE IN DRUG USAGE PROCESS [None]
